FAERS Safety Report 8175815-7 (Version None)
Quarter: 2012Q1

REPORT INFORMATION
  Report Type: 
  Country: None (occurrence: None)
  Receive Date: 20120228
  Receipt Date: 20120228
  Transmission Date: 20120608
  Serious: Yes (Hospitalization)
  Sender: FDA-Public Use
  Company Number: None

PATIENT
  Age: 66 Year
  Sex: Male

DRUGS (6)
  1. HYDROCODONE BITARTRATE AND ACETAMINOPHEN [Concomitant]
  2. REVLIMID [Suspect]
     Indication: MULTIPLE MYELOMA
     Dosage: REVLIMID 25 MG DAILY X21D/28D ORALLY
     Route: 048
     Dates: start: 20100301, end: 20120201
  3. LEVOTHYROXINE SODIUM [Concomitant]
  4. VIAGRA [Concomitant]
  5. BROMOCRIPTINE MESYLATE [Concomitant]
  6. TESTOSTERONE PATCH [Concomitant]

REACTIONS (6)
  - ASTHENIA [None]
  - DISEASE PROGRESSION [None]
  - CHILLS [None]
  - SEPSIS [None]
  - MULTIPLE MYELOMA [None]
  - NEUTROPENIA [None]
